FAERS Safety Report 6818197-2 (Version None)
Quarter: 2010Q3

REPORT INFORMATION
  Report Type: 
  Country: None (occurrence: None)
  Receive Date: 20100706
  Receipt Date: 20070417
  Transmission Date: 20110219
  Serious: No
  Sender: FDA-Public Use
  Company Number: US-PFIZER INC-2006154225

PATIENT
  Sex: Male
  Weight: 45.4 kg

DRUGS (14)
  1. ZITHROMAX [Suspect]
     Indication: CYSTIC FIBROSIS
     Dosage: 3 EVERY 1 WEEKS
  2. ZITHROMAX [Suspect]
     Dosage: 3 EVERY 1 WEEKS
     Dates: start: 20060501
  3. PULMICORT [Concomitant]
  4. ALL OTHER THERAPEUTIC PRODUCTS [Concomitant]
  5. ALL OTHER THERAPEUTIC PRODUCTS [Concomitant]
  6. ALBUTEROL [Concomitant]
  7. CEFIXIME [Concomitant]
  8. TOBRAMYCIN [Concomitant]
  9. CREON [Concomitant]
  10. MULTI-VITAMINS [Concomitant]
  11. CYPROHEPTADINE HCL [Concomitant]
  12. PHYTONADIONE [Concomitant]
  13. ALL OTHER THERAPEUTIC PRODUCTS [Concomitant]
  14. TYLENOL [Concomitant]

REACTIONS (3)
  - BLOOD GLUCOSE INCREASED [None]
  - DYSGEUSIA [None]
  - PAROSMIA [None]
